FAERS Safety Report 5735123-8 (Version None)
Quarter: 2008Q2

REPORT INFORMATION
  Report Type: 
  Country: None (occurrence: None)
  Receive Date: 20080510
  Receipt Date: 20080510
  Transmission Date: 20081010
  Serious: Yes (Other)
  Sender: FDA-Public Use
  Company Number: None

PATIENT
  Age: 61 Year
  Sex: Female
  Weight: 58.9676 kg

DRUGS (1)
  1. CREST PRO HEALTH MOUTH RINSE PROCTER AND GAMBLE [Suspect]
     Dosage: DAILY DENTAL
     Route: 004
     Dates: start: 20080101, end: 20080403

REACTIONS (2)
  - GLOSSITIS [None]
  - ORAL INTAKE REDUCED [None]
